FAERS Safety Report 6896809-5 (Version None)
Quarter: 2010Q3

REPORT INFORMATION
  Report Type: 
  Country: None (occurrence: None)
  Receive Date: 20100802
  Receipt Date: 20100722
  Transmission Date: 20110219
  Serious: Yes (Other)
  Sender: FDA-Public Use
  Company Number: GB-GILEAD-2010-0030567

PATIENT
  Age: 50 Year
  Sex: Male

DRUGS (12)
  1. VIREAD [Suspect]
     Indication: HIV INFECTION
  2. EMTRICITABINE [Suspect]
     Indication: HIV INFECTION
  3. ACYCLOVIR [Suspect]
     Indication: ANTIBIOTIC PROPHYLAXIS
  4. AZITHROMYCIN [Suspect]
     Indication: ANTIBIOTIC PROPHYLAXIS
  5. CYCLOPHOSPHAMIDE [Suspect]
     Indication: PLASMABLASTIC LYMPHOMA
  6. DARUNAVIR [Suspect]
     Indication: HIV INFECTION
  7. DOXORUBICIN HCL [Suspect]
     Indication: PLASMABLASTIC LYMPHOMA
  8. FLUCONAZOLE [Suspect]
     Indication: ANTIBIOTIC PROPHYLAXIS
  9. PREDNISOLONE [Suspect]
     Indication: PLASMABLASTIC LYMPHOMA
  10. RITONAVIR [Suspect]
     Indication: HIV INFECTION
  11. VINCRISTINE [Suspect]
     Indication: PLASMABLASTIC LYMPHOMA
  12. COTRIM [Concomitant]
     Indication: ANTIBIOTIC PROPHYLAXIS

REACTIONS (2)
  - CYTOMEGALOVIRUS INFECTION [None]
  - FEBRILE NEUTROPENIA [None]
